FAERS Safety Report 21682074 (Version 1)
Quarter: 2022Q4

REPORT INFORMATION
  Report Type: Spontaneous
  Country: US (occurrence: US)
  Receive Date: 20221205
  Receipt Date: 20221205
  Transmission Date: 20230113
  Serious: No
  Sender: FDA-Public Use
  Company Number: US-PFIZER INC-202201345762

PATIENT
  Age: 51 Year
  Sex: Female
  Weight: 95.25 kg

DRUGS (1)
  1. PAXLOVID [Suspect]
     Active Substance: NIRMATRELVIR\RITONAVIR
     Indication: COVID-19 treatment
     Dosage: UNK
     Dates: start: 202211

REACTIONS (7)
  - Feeling abnormal [Unknown]
  - Ocular hyperaemia [Unknown]
  - Eye pruritus [Unknown]
  - Ocular icterus [Unknown]
  - Stomatitis [Unknown]
  - Cheilitis [Unknown]
  - Dizziness [Unknown]

NARRATIVE: CASE EVENT DATE: 20221130
